FAERS Safety Report 17610666 (Version 3)
Quarter: 2020Q3

REPORT INFORMATION
  Report Type: Report from Study
  Country: CA (occurrence: CA)
  Receive Date: 20200401
  Receipt Date: 20200921
  Transmission Date: 20201102
  Serious: Yes (Hospitalization, Other)
  Sender: FDA-Public Use
  Company Number: PHHY2014CA011552

PATIENT
  Age: 76 Year
  Sex: Male

DRUGS (6)
  1. SANDOSTATIN [Suspect]
     Active Substance: OCTREOTIDE ACETATE
  2. SANDOSTATIN LAR DEPOT [Suspect]
     Active Substance: OCTREOTIDE ACETATE
  3. SANDOSTATIN LAR DEPOT [Suspect]
     Active Substance: OCTREOTIDE ACETATE
  4. SANDOSTATIN [Suspect]
     Active Substance: OCTREOTIDE ACETATE
     Indication: NEUROENDOCRINE TUMOUR
     Dosage: 100 MCG/ML, ONCE/SINGLE (TEST DOSE)
     Route: 058
     Dates: start: 20140117, end: 20140117
  5. SANDOSTATIN LAR DEPOT [Suspect]
     Active Substance: OCTREOTIDE ACETATE
     Indication: NEUROENDOCRINE TUMOUR
     Dosage: 30 MG, Q4W
     Route: 030
     Dates: start: 20140125
  6. SANDOSTATIN [Suspect]
     Active Substance: OCTREOTIDE ACETATE

REACTIONS (12)
  - Tendon rupture [Unknown]
  - Abdominal hernia [Unknown]
  - Procedural pain [Unknown]
  - Nasopharyngitis [Unknown]
  - Discomfort [Unknown]
  - Wound [Unknown]
  - Depression [Unknown]
  - Fall [Unknown]
  - Blood pressure systolic increased [Unknown]
  - Cough [Unknown]
  - Diarrhoea [Unknown]
  - Mental impairment [Unknown]

NARRATIVE: CASE EVENT DATE: 20140125
